FAERS Safety Report 23630377 (Version 2)
Quarter: 2024Q3

REPORT INFORMATION
  Report Type: Spontaneous
  Country: US (occurrence: US)
  Receive Date: 20240314
  Receipt Date: 20240822
  Transmission Date: 20241017
  Serious: No
  Sender: AMGEN
  Company Number: US-AMGEN-USASP2024049941

PATIENT
  Age: 52 Year
  Sex: Female

DRUGS (4)
  1. REPATHA [Suspect]
     Active Substance: EVOLOCUMAB
     Indication: Blood cholesterol increased
     Dosage: 420 MILLIGRAM, QMO
     Route: 065
  2. REPATHA [Suspect]
     Active Substance: EVOLOCUMAB
     Indication: Mast cell activation syndrome
  3. EMGALITY [Concomitant]
     Active Substance: GALCANEZUMAB-GNLM
  4. EPIPEN [Concomitant]
     Active Substance: EPINEPHRINE

REACTIONS (4)
  - Injection site pain [Unknown]
  - Drug dose omission by device [Unknown]
  - Wrong technique in product usage process [Unknown]
  - Off label use [Unknown]

NARRATIVE: CASE EVENT DATE: 20240306
